FAERS Safety Report 8972586 (Version 3)
Quarter: 2014Q1

REPORT INFORMATION
  Report Type: Report from Study
  Country: US (occurrence: US)
  Receive Date: 20121219
  Receipt Date: 20140206
  Transmission Date: 20141002
  Serious: Yes (Life-Threatening, Hospitalization)
  Sender: FDA-Public Use
  Company Number: US-ELI_LILLY_AND_COMPANY-US201205008084

PATIENT
  Age: 62 Year
  Sex: Female

DRUGS (4)
  1. TERIPARATIDE [Suspect]
     Indication: OSTEOPOROSIS
     Dosage: 20 UG, QD
     Route: 065
     Dates: start: 201105
  2. TERIPARATIDE [Suspect]
     Dosage: 20 UG, QD
     Route: 065
  3. TERIPARATIDE [Suspect]
     Dosage: 20 UG, QD
     Route: 065
  4. ANTIHYPERTENSIVES [Concomitant]
     Indication: HYPERTENSION

REACTIONS (12)
  - Coma [Unknown]
  - Convulsion [Unknown]
  - Chronic obstructive pulmonary disease [Unknown]
  - Convulsion [Unknown]
  - Respiratory distress [Unknown]
  - Convulsion [Unknown]
  - Malaise [Unknown]
  - Blood pressure decreased [Unknown]
  - Injection site bruising [Unknown]
  - Injection site irritation [Unknown]
  - Weight increased [Unknown]
  - Nervous system disorder [Unknown]
